FAERS Safety Report 5977843-6 (Version None)
Quarter: 2008Q4

REPORT INFORMATION
  Report Type: 
  Country: None (occurrence: None)
  Receive Date: 20081203
  Receipt Date: 20081121
  Transmission Date: 20090506
  Serious: Yes (Hospitalization)
  Sender: FDA-Public Use
  Company Number: FR-SANOFI-SYNTHELABO-A02200803332

PATIENT
  Age: 88 Year
  Sex: Female

DRUGS (4)
  1. ZOLPIDEM [Suspect]
     Indication: SLEEP DISORDER
     Route: 048
     Dates: start: 20070101, end: 20081103
  2. RISPERDAL [Concomitant]
     Dosage: UNK
     Route: 065
  3. ATHYMIL [Concomitant]
     Dosage: UNK
     Route: 065
  4. AMITRIPTYLINE HCL [Concomitant]
     Dosage: UNK
     Route: 065

REACTIONS (4)
  - COMA [None]
  - DEPRESSED LEVEL OF CONSCIOUSNESS [None]
  - FALL [None]
  - MEDICATION ERROR [None]
